FAERS Safety Report 12215685 (Version 4)
Quarter: 2016Q2

REPORT INFORMATION
  Report Type: Spontaneous
  Country: FI (occurrence: FI)
  Receive Date: 20160328
  Receipt Date: 20160411
  Transmission Date: 20160815
  Serious: Yes (Hospitalization, Other)
  Sender: FDA-Public Use
  Company Number: PHHY2016FI040330

PATIENT
  Sex: Female

DRUGS (1)
  1. GILENYA [Suspect]
     Active Substance: FINGOLIMOD HYDROCHLORIDE
     Indication: MULTIPLE SCLEROSIS
     Dosage: UNK
     Route: 065
     Dates: start: 201412, end: 201508

REACTIONS (23)
  - Abdominal pain upper [Unknown]
  - Sensory loss [Unknown]
  - Back pain [Unknown]
  - Stress fracture [Unknown]
  - Abdominal discomfort [Unknown]
  - Depressed mood [Unknown]
  - Limb injury [Unknown]
  - Hemiparesis [Unknown]
  - Insomnia [Unknown]
  - Swelling face [Unknown]
  - Dysphagia [Unknown]
  - Visual impairment [Recovered/Resolved]
  - Joint injury [Recovering/Resolving]
  - Energy increased [Unknown]
  - Irritability [Unknown]
  - Multiple sclerosis relapse [Unknown]
  - Fatigue [Unknown]
  - Pain in extremity [Unknown]
  - Haemorrhage [Unknown]
  - Sensory disturbance [Unknown]
  - Multiple sclerosis relapse [Recovered/Resolved]
  - Limb discomfort [Unknown]
  - Optic neuritis [Recovered/Resolved]

NARRATIVE: CASE EVENT DATE: 201512
